FAERS Safety Report 25647214 (Version 1)
Quarter: 2025Q3

REPORT INFORMATION
  Report Type: Spontaneous
  Country: US (occurrence: US)
  Receive Date: 20250806
  Receipt Date: 20250806
  Transmission Date: 20251021
  Serious: No
  Sender: BIONPHARMA INC.
  Company Number: US-Bion-015171

PATIENT
  Age: 10 Year
  Sex: Male

DRUGS (1)
  1. CETIRIZINE [Suspect]
     Active Substance: CETIRIZINE HYDROCHLORIDE
     Indication: Product used for unknown indication
     Route: 048

REACTIONS (3)
  - Wrong dosage form [Unknown]
  - Oral administration complication [Unknown]
  - Product use complaint [Unknown]
